FAERS Safety Report 8557065-5 (Version None)
Quarter: 2012Q3

REPORT INFORMATION
  Report Type: 
  Country: None (occurrence: None)
  Receive Date: 20120801
  Receipt Date: 20120727
  Transmission Date: 20120928
  Serious: Yes (Hospitalization)
  Sender: FDA-Public Use
  Company Number: FR-009507513-1104FRA00077

PATIENT

DRUGS (8)
  1. VORINOSTAT-MYCOSIS FUNGOIDES [Suspect]
     Indication: MYELODYSPLASTIC SYNDROME
     Dosage: 400 MG, QD
     Route: 048
     Dates: start: 20110215, end: 20110228
  2. VORINOSTAT-MYCOSIS FUNGOIDES [Suspect]
     Dosage: 400 MG, QD
     Route: 048
     Dates: start: 20110321, end: 20110403
  3. PLAVIX [Concomitant]
     Dosage: 1 DF, QD
     Route: 048
  4. CYTARABINE [Suspect]
     Dosage: 18.4 MG, QD
     Route: 058
     Dates: start: 20110215, end: 20110228
  5. PRETERAX (INDAPAMIDE (+) PERINDOPRIL ERBUMINE) [Concomitant]
     Indication: HYPERTENSION
     Dosage: 2 DF, QD
     Route: 048
     Dates: end: 20110314
  6. VFEND [Concomitant]
     Indication: PROPHYLAXIS
     Dosage: 400 MG, QD
     Route: 048
     Dates: end: 20110316
  7. CYTARABINE [Suspect]
     Dosage: 36.8 MG, QD
     Route: 058
     Dates: start: 20110321, end: 20110406
  8. OMEPRAZOLE [Concomitant]
     Indication: PROPHYLAXIS
     Dosage: 20 MG, QD

REACTIONS (5)
  - THROMBOCYTOPENIA [None]
  - HYPERTHERMIA [None]
  - ANAEMIA [None]
  - GENERAL PHYSICAL HEALTH DETERIORATION [None]
  - EMBOLISM [None]
